FAERS Safety Report 8942796 (Version 4)
Quarter: 2013Q1

REPORT INFORMATION
  Report Type: Spontaneous
  Country: JP (occurrence: JP)
  Receive Date: 20121204
  Receipt Date: 20130204
  Transmission Date: 20140127
  Serious: Yes (Other)
  Sender: FDA-Public Use
  Company Number: JP-PFIZER INC-2012298169

PATIENT
  Age: 13 Year
  Sex: Male
  Weight: 40 kg

DRUGS (11)
  1. GENOTROPIN TC [Suspect]
     Indication: GROWTH HORMONE DEFICIENCY
     Dosage: 1.2 MG, 1X/DAY (6 TIMES/WEEK)
     Route: 058
     Dates: start: 20120919, end: 20121016
  2. GENOTROPIN TC [Suspect]
     Dosage: 0.6 MG, 1X/DAY (6 TIMES/WEEK)
     Route: 058
     Dates: start: 20121017, end: 20121111
  3. GENOTROPIN TC [Suspect]
     Dosage: 0.9 MG, 1X/DAY (6 TIMES/WEEK)
     Route: 058
     Dates: start: 20121112, end: 20121120
  4. GENOTROPIN TC [Suspect]
     Dosage: 1.2 MG, 1X/DAY (6 TIMES/WEEK)
     Route: 058
     Dates: start: 20121121, end: 20121125
  5. GENOTROPIN TC [Suspect]
     Dosage: 0.9 MG, 1X/DAY (6 TIMES/WEEK)
     Route: 058
     Dates: start: 20121126, end: 20121221
  6. DEPAKENE [Concomitant]
     Indication: EPILEPSY
     Dosage: 600 MG
     Route: 048
     Dates: start: 20060130
  7. LAMICTAL [Concomitant]
     Indication: EPILEPSY
     Dosage: 15 MG, 3X/DAY
     Route: 048
  8. SCOPOLIA EXTRACT [Concomitant]
     Indication: EPILEPSY
     Dosage: UNK
     Route: 048
  9. VITAMIN A [Concomitant]
     Indication: EPILEPSY
     Dosage: UNK
     Route: 048
  10. VITAMIN B6 [Concomitant]
     Indication: EPILEPSY
     Dosage: UNK
     Route: 048
  11. LEVETIRACETAM [Concomitant]
     Indication: EPILEPSY
     Dosage: 1500 MG, 2X/DAY
     Route: 048

REACTIONS (1)
  - Epilepsy [Recovering/Resolving]
